FAERS Safety Report 8458538-6 (Version None)
Quarter: 2012Q2

REPORT INFORMATION
  Report Type: 
  Country: None (occurrence: None)
  Receive Date: 20120622
  Receipt Date: 20120615
  Transmission Date: 20120825
  Serious: Yes (Other)
  Sender: FDA-Public Use
  Company Number: US-JNJFOC-20110608958

PATIENT
  Age: 59 Year
  Sex: Female

DRUGS (8)
  1. PREDNISONE TAB [Concomitant]
     Dates: start: 20020920, end: 20090808
  2. METHOTREXATE [Concomitant]
     Dates: start: 20020117, end: 20080920
  3. LEFLUNOMIDE [Concomitant]
     Dates: start: 20070928, end: 20090406
  4. REMICADE [Suspect]
     Indication: PRODUCT USED FOR UNKNOWN INDICATION
     Route: 042
     Dates: start: 20010619, end: 20041202
  5. FOSAMAX [Concomitant]
  6. METHYLPREDNISOLONE [Concomitant]
  7. HUMIRA [Concomitant]
     Dates: start: 20060613
  8. HUMIRA [Concomitant]
     Dates: start: 20060905

REACTIONS (1)
  - PROGRESSIVE MULTIFOCAL LEUKOENCEPHALOPATHY [None]
